FAERS Safety Report 8178458-4 (Version None)
Quarter: 2012Q1

REPORT INFORMATION
  Report Type: 
  Country: None (occurrence: None)
  Receive Date: 20120301
  Receipt Date: 20120228
  Transmission Date: 20120608
  Serious: No
  Sender: FDA-Public Use
  Company Number: US-PFIZER INC-2012053734

PATIENT
  Sex: Male
  Weight: 95.238 kg

DRUGS (20)
  1. ACETAMINOPHEN AND OXYCODONE HCL [Concomitant]
     Indication: ARTHRALGIA
     Dosage: UNK, 3X/DAY
     Dates: start: 19930101
  2. OSTEO BI-FLEX [Concomitant]
     Indication: ARTHRALGIA
     Dosage: UNK, 2X/DAY
     Dates: start: 19930101
  3. OSTEO BI-FLEX [Concomitant]
     Indication: BACK PAIN
  4. CARISOPRODOL [Concomitant]
     Indication: ARTHRALGIA
     Dosage: UNK, 3X/DAY
     Dates: start: 19930101
  5. ACETYLSALICYLIC ACID [Concomitant]
     Indication: CARDIAC DISORDER
     Dosage: 162 MG, DAILY
  6. LIPITOR [Suspect]
     Indication: BLOOD CHOLESTEROL
     Dosage: 40 MG, 1X/DAY
     Dates: end: 20120101
  7. CELEBREX [Suspect]
     Indication: PAIN
  8. CELEBREX [Suspect]
     Indication: BACK PAIN
     Dosage: 200 MG, DAILY
  9. CARISOPRODOL [Concomitant]
     Indication: PAIN
  10. METOPROLOL TARTRATE [Concomitant]
     Indication: HYPERTENSION
     Dosage: 25 MG, 2X/DAY
  11. SAW PALMETTO [Concomitant]
     Indication: PROSTATIC DISORDER
     Dosage: UNK, 2X/DAY
     Route: 048
  12. ZETIA [Concomitant]
     Indication: BLOOD CHOLESTEROL ABNORMAL
     Dosage: 10 MG, DAILY
  13. ACETAMINOPHEN AND OXYCODONE HCL [Concomitant]
     Indication: PAIN
  14. RAMIPRIL [Concomitant]
     Indication: HYPERTENSION
     Dosage: 10 MG, DAILY
  15. CELEBREX [Suspect]
     Indication: ARTHRALGIA
     Dosage: 200 MG, 2X/DAY
     Route: 048
  16. ACETAMINOPHEN AND OXYCODONE HCL [Concomitant]
     Indication: BACK PAIN
  17. CARISOPRODOL [Concomitant]
     Indication: BACK PAIN
  18. OSTEO BI-FLEX [Concomitant]
     Indication: PAIN
  19. LOVAZA [Concomitant]
     Indication: CARDIAC DISORDER
     Dosage: 1000 MG, 2X/DAY
  20. PLAVIX [Concomitant]
     Indication: ANTICOAGULANT THERAPY
     Dosage: 75 MG, DAILY

REACTIONS (2)
  - NEURALGIA [None]
  - HIGH DENSITY LIPOPROTEIN DECREASED [None]
